FAERS Safety Report 15234176 (Version 1)
Quarter: 2018Q3

REPORT INFORMATION
  Report Type: Spontaneous
  Country: ES (occurrence: ES)
  Receive Date: 20180802
  Receipt Date: 20180802
  Transmission Date: 20181010
  Serious: Yes (Death, Hospitalization, Other)
  Sender: FDA-Public Use
  Company Number: ES-TEVA-2018-ES-933964

PATIENT
  Age: 81 Year
  Sex: Female

DRUGS (5)
  1. LINEZOLID. [Suspect]
     Active Substance: LINEZOLID
     Indication: INJURY
     Route: 065
  2. PARACETAMOL [Concomitant]
     Active Substance: ACETAMINOPHEN
     Indication: INJURY
  3. FUROSEMIDE. [Suspect]
     Active Substance: FUROSEMIDE
     Route: 065
  4. METAMIZOLE [Suspect]
     Active Substance: METAMIZOLE
     Indication: INJURY
     Route: 065
  5. PIPERACILLIN?TAZOBACTAN [Concomitant]

REACTIONS (12)
  - Dyspnoea [Fatal]
  - Pneumonia [Fatal]
  - Thrombocytopenia [Fatal]
  - Female genital tract fistula [Fatal]
  - Febrile neutropenia [Fatal]
  - Urosepsis [Fatal]
  - Acute kidney injury [Fatal]
  - Dysuria [Fatal]
  - Acute respiratory failure [Fatal]
  - Chills [Fatal]
  - Cardiac failure [Fatal]
  - Respiratory tract infection [Fatal]
